FAERS Safety Report 7940788-6 (Version None)
Quarter: 2011Q4

REPORT INFORMATION
  Report Type: 
  Country: None (occurrence: None)
  Receive Date: 20111128
  Receipt Date: 20111118
  Transmission Date: 20120403
  Serious: Yes (Other)
  Sender: FDA-Public Use
  Company Number: TW-PFIZER INC-2011282343

PATIENT

DRUGS (2)
  1. SUNITINIB MALATE [Suspect]
     Dosage: 3 DF, 1X/DAY
     Route: 048
  2. SUNITINIB MALATE [Suspect]
     Dosage: 2 DF, 1X/DAY
     Route: 048

REACTIONS (1)
  - ASCITES [None]
